FAERS Safety Report 12091814 (Version 2)
Quarter: 2019Q1

REPORT INFORMATION
  Report Type: Spontaneous
  Country: US (occurrence: US)
  Receive Date: 20160218
  Receipt Date: 20190125
  Transmission Date: 20190417
  Serious: No
  Sender: FDA-Public Use
  Company Number: US-ASTRAZENECA-2016SE14095

PATIENT
  Age: 70 Year
  Sex: Female
  Weight: 88.5 kg

DRUGS (15)
  1. NEXIUM 24HR [Suspect]
     Active Substance: ESOMEPRAZOLE MAGNESIUM
     Indication: OESOPHAGEAL DISORDER
     Route: 048
  2. AMLODIPINE [Concomitant]
     Active Substance: AMLODIPINE BESYLATE
     Indication: BLOOD PRESSURE ABNORMAL
  3. NEXIUM [Suspect]
     Active Substance: ESOMEPRAZOLE MAGNESIUM
     Indication: OESOPHAGEAL DISORDER
     Route: 048
     Dates: start: 2016
  4. ENALAPRIL [Concomitant]
     Active Substance: ENALAPRIL
     Indication: BLOOD PRESSURE ABNORMAL
  5. NEXIUM 24HR [Suspect]
     Active Substance: ESOMEPRAZOLE MAGNESIUM
     Indication: OESOPHAGEAL DISORDER
     Route: 048
  6. LEVOTHYROXINE. [Concomitant]
     Active Substance: LEVOTHYROXINE
     Indication: THYROID DISORDER
  7. BRILINTA [Suspect]
     Active Substance: TICAGRELOR
     Indication: MYOCARDIAL INFARCTION
     Route: 048
     Dates: start: 20160128
  8. LUMIGAN [Concomitant]
     Active Substance: BIMATOPROST
     Indication: GLAUCOMA
  9. PRILOSEC [Suspect]
     Active Substance: OMEPRAZOLE MAGNESIUM
     Indication: OESOPHAGEAL DISORDER
     Route: 048
  10. DORZOLAMIDE [Concomitant]
     Active Substance: DORZOLAMIDE
     Indication: GLAUCOMA
  11. ASPIRIN. [Concomitant]
     Active Substance: ASPIRIN
     Indication: PROPHYLAXIS
  12. BRILINTA [Suspect]
     Active Substance: TICAGRELOR
     Indication: ACUTE CORONARY SYNDROME
     Route: 048
     Dates: start: 20160128
  13. LOVAZA [Concomitant]
     Active Substance: OMEGA-3-ACID ETHYL ESTERS
  14. NEXIUM [Suspect]
     Active Substance: ESOMEPRAZOLE MAGNESIUM
     Indication: OESOPHAGEAL DISORDER
     Route: 048
     Dates: start: 2016
  15. PILOCARPINE. [Concomitant]
     Active Substance: PILOCARPINE
     Indication: GLAUCOMA

REACTIONS (15)
  - Paraesthesia [Unknown]
  - Chest discomfort [Unknown]
  - Condition aggravated [Unknown]
  - Off label use [Unknown]
  - Pain in extremity [Recovered/Resolved]
  - Gingival pain [Unknown]
  - Oesophageal discomfort [Unknown]
  - Abdominal pain lower [Recovered/Resolved]
  - Dyspepsia [Unknown]
  - Drug effective for unapproved indication [Unknown]
  - Influenza [Unknown]
  - Eructation [Unknown]
  - Intentional product misuse [Unknown]
  - Lymphadenopathy [Unknown]
  - Product use in unapproved indication [Unknown]

NARRATIVE: CASE EVENT DATE: 2016
